FAERS Safety Report 24018133 (Version 1)
Quarter: 2024Q2

REPORT INFORMATION
  Report Type: Spontaneous
  Country: DE (occurrence: DE)
  Receive Date: 20240627
  Receipt Date: 20240627
  Transmission Date: 20240716
  Serious: Yes (Hospitalization, Other)
  Sender: FDA-Public Use
  Company Number: DE-CHIESI-2021CHF04112

PATIENT
  Age: 44 Year
  Sex: Male

DRUGS (9)
  1. EBASTINE [Suspect]
     Active Substance: EBASTINE
     Dosage: UNK
     Route: 048
  2. EBASTINE [Suspect]
     Active Substance: EBASTINE
     Indication: Suicide attempt
     Dosage: UNK
     Route: 065
     Dates: start: 20210814, end: 20210814
  3. FOSTER [Suspect]
     Active Substance: BECLOMETHASONE\FORMOTEROL
     Dosage: 4 DF, QD
     Route: 055
  4. FOSTER [Suspect]
     Active Substance: BECLOMETHASONE\FORMOTEROL
     Indication: Suicide attempt
     Dosage: UNK
     Route: 055
     Dates: start: 20210814, end: 20210814
  5. IBUPROFEN [Suspect]
     Active Substance: IBUPROFEN
     Indication: Suicide attempt
     Dosage: 8000 MG, QD
     Route: 048
     Dates: start: 20210814, end: 20210814
  6. PANTOPRAZOLE [Suspect]
     Active Substance: PANTOPRAZOLE
     Indication: Suicide attempt
     Dosage: UNK
     Route: 048
     Dates: start: 20210814, end: 20210814
  7. ALBUTEROL [Suspect]
     Active Substance: ALBUTEROL
     Dosage: UNK
     Route: 055
  8. ALBUTEROL [Suspect]
     Active Substance: ALBUTEROL
     Indication: Suicide attempt
     Dosage: UNK
     Route: 065
     Dates: start: 20210814, end: 20210814
  9. THEOPHYLLINE [Suspect]
     Active Substance: THEOPHYLLINE
     Indication: Suicide attempt
     Dosage: UNK
     Route: 048
     Dates: start: 20210814, end: 20210814

REACTIONS (15)
  - Electrocardiogram ST segment elevation [Recovering/Resolving]
  - Suicide attempt [Recovered/Resolved]
  - Drug abuse [Recovered/Resolved]
  - Hyperglycaemia [Recovering/Resolving]
  - Chills [Recovering/Resolving]
  - Somnolence [Recovering/Resolving]
  - Body temperature decreased [Recovered/Resolved]
  - Discoloured vomit [Recovered/Resolved]
  - Heart rate increased [Recovered/Resolved]
  - Infection [Recovered/Resolved]
  - Toxicity to various agents [Recovered/Resolved]
  - Blood glucose increased [Recovering/Resolving]
  - Blood pressure decreased [Recovering/Resolving]
  - Hypokalaemia [Recovered/Resolved]
  - Aspiration [Unknown]

NARRATIVE: CASE EVENT DATE: 20210814
